FAERS Safety Report 20309878 (Version 2)
Quarter: 2022Q1

REPORT INFORMATION
  Report Type: Spontaneous
  Country: IN (occurrence: IN)
  Receive Date: 20220107
  Receipt Date: 20220129
  Transmission Date: 20220423
  Serious: No
  Sender: FDA-Public Use
  Company Number: IN-LUPIN PHARMACEUTICALS INC.-2021-26482

PATIENT
  Age: 23 Year
  Sex: Female

DRUGS (8)
  1. METRONIDAZOLE [Suspect]
     Active Substance: METRONIDAZOLE
     Indication: Infection prophylaxis
     Dosage: 100 MILLILITER
     Route: 042
     Dates: start: 20210502, end: 20210502
  2. DICLOFENAC [Suspect]
     Active Substance: DICLOFENAC
     Indication: Prophylaxis
     Dosage: 75 MILLIGRAM
     Route: 030
     Dates: start: 20210502, end: 20210502
  3. METOCLOPRAMIDE [Suspect]
     Active Substance: METOCLOPRAMIDE
     Indication: Prophylaxis
     Dosage: 2 MILLILITER
     Route: 030
     Dates: start: 20210502, end: 20210502
  4. CEFOTAXIME SODIUM [Suspect]
     Active Substance: CEFOTAXIME SODIUM
     Indication: Infection prophylaxis
     Dosage: 1 GRAM (INJECTION)
     Route: 042
     Dates: start: 20210502, end: 20210502
  5. BUPIVACAINE HYDROCHLORIDE [Suspect]
     Active Substance: BUPIVACAINE HYDROCHLORIDE
     Indication: Spinal anaesthesia
     Dosage: UNK
     Route: 065
     Dates: start: 20210502, end: 20210502
  6. PENTAZOCINE [Suspect]
     Active Substance: PENTAZOCINE
     Indication: Analgesic therapy
     Dosage: UNK
     Route: 065
     Dates: start: 20210502, end: 20210502
  7. AMIKACIN [Suspect]
     Active Substance: AMIKACIN
     Indication: Infection prophylaxis
     Dosage: 80 MILLIGRAM
     Route: 042
     Dates: start: 20210502, end: 20210502
  8. PANTOPRAZOLE [Suspect]
     Active Substance: PANTOPRAZOLE
     Indication: Prophylaxis
     Dosage: 40 MILLIGRAM
     Route: 042
     Dates: start: 20210502, end: 20210502

REACTIONS (1)
  - Exposure during pregnancy [Unknown]

NARRATIVE: CASE EVENT DATE: 20210502
